FAERS Safety Report 12244215 (Version 2)
Quarter: 2018Q2

REPORT INFORMATION
  Report Type: Spontaneous
  Country: CA (occurrence: CA)
  Receive Date: 20160407
  Receipt Date: 20180511
  Transmission Date: 20180711
  Serious: Yes (Life-Threatening, Hospitalization)
  Sender: FDA-Public Use
  Company Number: CA-ABBVIE-15K-028-1507259-00

PATIENT
  Age: 54 Year
  Sex: Male

DRUGS (4)
  1. REMICADE [Suspect]
     Active Substance: INFLIXIMAB
     Indication: RHEUMATOID ARTHRITIS
     Route: 042
     Dates: start: 20140922, end: 20150723
  2. HUMIRA [Suspect]
     Active Substance: ADALIMUMAB
     Indication: RHEUMATOID ARTHRITIS
     Route: 058
     Dates: start: 20150520, end: 20151103
  3. ENBREL [Suspect]
     Active Substance: ETANERCEPT
     Indication: RHEUMATOID ARTHRITIS
     Route: 065
     Dates: start: 20140714, end: 20140915
  4. METHOTREXATE. [Concomitant]
     Active Substance: METHOTREXATE
     Indication: RHEUMATOID ARTHRITIS
     Dosage: CURRENTLY ON MAX DOSE OF METHOTREXATE
     Dates: start: 20131126

REACTIONS (9)
  - Adverse event [Unknown]
  - Drug ineffective [Unknown]
  - Arthralgia [Unknown]
  - Adverse drug reaction [Unknown]
  - Drug ineffective [Unknown]
  - Apparent death [Unknown]
  - Adverse drug reaction [Unknown]
  - Feeling abnormal [Unknown]
  - Joint swelling [Unknown]

NARRATIVE: CASE EVENT DATE: 2015
